FAERS Safety Report 12121756 (Version 1)
Quarter: 2016Q1

REPORT INFORMATION
  Report Type: Spontaneous
  Country: US (occurrence: US)
  Receive Date: 20160226
  Receipt Date: 20160226
  Transmission Date: 20160526
  Serious: No
  Sender: FDA-Public Use
  Company Number: US-ALLERGAN-1206702US

PATIENT
  Age: 69 Year
  Sex: Female

DRUGS (7)
  1. REFRESH PLUS [Suspect]
     Active Substance: CARBOXYMETHYLCELLULOSE SODIUM
     Indication: DRY EYE
     Route: 047
  2. TIMOLOL MALEATE. [Concomitant]
     Active Substance: TIMOLOL MALEATE
     Indication: INTRAOCULAR PRESSURE TEST
     Dosage: 1 GTT, BID
     Route: 047
  3. ZYMAXID [Concomitant]
     Active Substance: GATIFLOXACIN
     Indication: INTRAOCULAR PRESSURE TEST
     Dosage: 1 GTT, UNK
     Route: 047
  4. REFRESH CELLUVISC [Suspect]
     Active Substance: CARBOXYMETHYLCELLULOSE SODIUM
     Indication: DRY EYE
     Route: 047
  5. REFRESH OPTIVE SENSITIVE [Suspect]
     Active Substance: CARBOXYMETHYLCELLULOSE SODIUM\GLYCERIN
     Indication: DRY EYE
     Route: 047
  6. PRED FORTE [Concomitant]
     Active Substance: PREDNISOLONE ACETATE
     Indication: INTRAOCULAR PRESSURE TEST
     Dosage: 1 GTT, BID
     Route: 047
  7. ALLERCON [Concomitant]
     Indication: PRODUCT USED FOR UNKNOWN INDICATION
     Route: 047

REACTIONS (2)
  - Eye pruritus [Unknown]
  - Eye irritation [Unknown]
